FAERS Safety Report 16874787 (Version 1)
Quarter: 2019Q4

REPORT INFORMATION
  Report Type: Spontaneous
  Country: IN (occurrence: IN)
  Receive Date: 20191001
  Receipt Date: 20191001
  Transmission Date: 20200122
  Serious: Yes (Other)
  Sender: FDA-Public Use
  Company Number: PHHY2019IN226782

PATIENT
  Age: 41 Year
  Sex: Female
  Weight: 90.7 kg

DRUGS (12)
  1. ONDANSETRON [Concomitant]
     Active Substance: ONDANSETRON
     Indication: VOMITING
     Route: 065
     Dates: start: 20190218
  2. METOCLOPRAMID [Concomitant]
     Active Substance: METOCLOPRAMIDE
     Indication: PRODUCT USED FOR UNKNOWN INDICATION
     Route: 065
     Dates: start: 20190218
  3. OMEPRAZOLE. [Concomitant]
     Active Substance: OMEPRAZOLE
     Indication: GASTRITIS
     Route: 065
     Dates: start: 20190218
  4. DELAMANID [Suspect]
     Active Substance: DELAMANID
     Indication: PULMONARY TUBERCULOMA
     Dosage: 100 MG, BID (50 MG, 2 TABLETS, BID)
     Route: 065
     Dates: start: 20190218
  5. LINEZOLID. [Suspect]
     Active Substance: LINEZOLID
     Indication: PULMONARY TUBERCULOMA
     Dosage: UNK
     Route: 065
     Dates: start: 20190218, end: 201908
  6. GLYCOPYRRONIUM BROMIDE [Concomitant]
     Active Substance: GLYCOPYRRONIUM
     Indication: DYSPNOEA
     Route: 065
     Dates: start: 20190218
  7. BENADON [Concomitant]
     Active Substance: PYRIDOXINE HYDROCHLORIDE
     Indication: PRODUCT USED FOR UNKNOWN INDICATION
     Route: 065
  8. CLOFAZIMINE [Suspect]
     Active Substance: CLOFAZIMINE
     Indication: PULMONARY TUBERCULOMA
     Dosage: 100 MG, QD
     Route: 065
     Dates: start: 20190218
  9. BEDAQUILINE [Suspect]
     Active Substance: BEDAQUILINE
     Indication: PULMONARY TUBERCULOMA
     Dosage: 200 MG, TIW
     Route: 065
     Dates: start: 20190218
  10. MOXIFLOXACIN. [Suspect]
     Active Substance: MOXIFLOXACIN
     Indication: PULMONARY TUBERCULOMA
     Dosage: 60 MG, QD
     Route: 065
     Dates: start: 20190218
  11. AMITRIPTYLINE [Concomitant]
     Active Substance: AMITRIPTYLINE
     Indication: PRODUCT USED FOR UNKNOWN INDICATION
     Dosage: 25 MG, QD (AT NIGHT)
     Route: 065
  12. LINEZOLID. [Suspect]
     Active Substance: LINEZOLID
     Dosage: 300 MG, QD
     Route: 065
     Dates: start: 201908, end: 20190820

REACTIONS (11)
  - Haemoglobin decreased [Unknown]
  - Aspartate aminotransferase increased [Unknown]
  - Paraesthesia [Unknown]
  - Burning sensation [Unknown]
  - Visual impairment [Unknown]
  - Platelet count decreased [Unknown]
  - Neuropathy peripheral [Unknown]
  - Pain in extremity [Unknown]
  - Ocular toxicity [Unknown]
  - White blood cell count decreased [Unknown]
  - Incorrect product administration duration [Unknown]

NARRATIVE: CASE EVENT DATE: 20190716
